FAERS Safety Report 5801879-9 (Version None)
Quarter: 2008Q3

REPORT INFORMATION
  Report Type: 
  Country: None (occurrence: None)
  Receive Date: 20080707
  Receipt Date: 20080627
  Transmission Date: 20090109
  Serious: Yes (Hospitalization)
  Sender: FDA-Public Use
  Company Number: SE-ASTRAZENECA-2008SE03268

PATIENT
  Age: 28795 Day
  Sex: Female
  Weight: 48 kg

DRUGS (3)
  1. MARCAINE [Suspect]
     Indication: PROCTALGIA
     Route: 037
     Dates: start: 20080528, end: 20080610
  2. CLONIDINE [Suspect]
     Indication: PROCTALGIA
     Route: 037
     Dates: start: 20080528, end: 20080610
  3. MORPHINE SPECIAL [Suspect]
     Indication: PROCTALGIA
     Route: 037
     Dates: start: 20080528, end: 20080610

REACTIONS (3)
  - HEADACHE [None]
  - MUSCULOSKELETAL STIFFNESS [None]
  - PYREXIA [None]
